FAERS Safety Report 7026421-9 (Version None)
Quarter: 2010Q4

REPORT INFORMATION
  Report Type: 
  Country: None (occurrence: None)
  Receive Date: 20101004
  Receipt Date: 20100923
  Transmission Date: 20110411
  Serious: Yes (Hospitalization, Other)
  Sender: FDA-Public Use
  Company Number: PHHY2010MX63769

PATIENT
  Sex: Female

DRUGS (2)
  1. RASILEZ [Suspect]
     Indication: HYPERTENSION
     Dosage: 1 TABLET (300 MG) PER DAY
     Dates: start: 20100726
  2. IMMU-G [Concomitant]
     Dosage: UNK

REACTIONS (3)
  - OSTEOPOROSIS [None]
  - PARATHYROIDECTOMY [None]
  - PULMONARY OEDEMA [None]
